FAERS Safety Report 6438472-3 (Version None)
Quarter: 2009Q4

REPORT INFORMATION
  Report Type: 
  Country: None (occurrence: None)
  Receive Date: 20091112
  Receipt Date: 20091028
  Transmission Date: 20100525
  Serious: Yes (Other)
  Sender: FDA-Public Use
  Company Number: AU-GENENTECH-293894

PATIENT
  Sex: Female

DRUGS (1)
  1. XOLAIR [Suspect]
     Indication: DRUG USE FOR UNKNOWN INDICATION
     Dosage: UNK
     Dates: start: 20090914

REACTIONS (5)
  - ASTHMA [None]
  - BACK INJURY [None]
  - BACK PAIN [None]
  - INTERVERTEBRAL DISC PROTRUSION [None]
  - JOINT SWELLING [None]
